FAERS Safety Report 13345106 (Version 1)
Quarter: 2017Q1

REPORT INFORMATION
  Report Type: Spontaneous
  Country: US (occurrence: US)
  Receive Date: 20170316
  Receipt Date: 20170316
  Transmission Date: 20170428
  Serious: Yes (Other)
  Sender: FDA-Public Use
  Company Number: None

PATIENT
  Age: 40 Year
  Sex: Female
  Weight: 220 kg

DRUGS (3)
  1. BYSTOLIC [Concomitant]
     Active Substance: NEBIVOLOL HYDROCHLORIDE
  2. SYNTHROID [Concomitant]
     Active Substance: LEVOTHYROXINE SODIUM
  3. LEVOTHYROXINE 175MCG MFG:MYLAN [Suspect]
     Active Substance: LEVOTHYROXINE SODIUM
     Indication: HYPOTHYROIDISM
     Dosage: ?          OTHER STRENGTH:MCG;QUANTITY:1 TABLET(S);?
     Route: 048
     Dates: start: 20170222, end: 20170303

REACTIONS (8)
  - Oedema [None]
  - Oedema peripheral [None]
  - Pain in extremity [None]
  - Blood pressure increased [None]
  - Product substitution issue [None]
  - Skin disorder [None]
  - Pruritus [None]
  - Skin wound [None]

NARRATIVE: CASE EVENT DATE: 20170303
